FAERS Safety Report 22232947 (Version 2)
Quarter: 2024Q1

REPORT INFORMATION
  Report Type: Spontaneous
  Country: US (occurrence: US)
  Receive Date: 20230420
  Receipt Date: 20240202
  Transmission Date: 20240410
  Serious: No
  Sender: FDA-Public Use
  Company Number: US-SA-SAC20230419001588

PATIENT
  Age: 56 Year
  Sex: Female

DRUGS (1)
  1. DUPIXENT [Suspect]
     Active Substance: DUPILUMAB
     Indication: Asthma
     Dosage: 200 MG, QOW
     Route: 058
     Dates: start: 202212

REACTIONS (7)
  - Cough [Not Recovered/Not Resolved]
  - Dyspnoea [Not Recovered/Not Resolved]
  - Injection site swelling [Recovered/Resolved]
  - Injection site erythema [Recovered/Resolved]
  - Injection site pain [Recovered/Resolved]
  - Injection site pruritus [Recovered/Resolved]
  - Therapeutic product effect decreased [Unknown]

NARRATIVE: CASE EVENT DATE: 20231001
